FAERS Safety Report 6647144-1 (Version None)
Quarter: 2010Q1

REPORT INFORMATION
  Report Type: 
  Country: None (occurrence: None)
  Receive Date: 20100323
  Receipt Date: 20100316
  Transmission Date: 20100710
  Serious: Yes (Hospitalization, Other)
  Sender: FDA-Public Use
  Company Number: PHHY2010CL16510

PATIENT

DRUGS (1)
  1. EXELON [Suspect]
     Indication: SENILE DEMENTIA
     Dosage: 2 TABLETS PER DAY
     Route: 048
     Dates: start: 20080101

REACTIONS (1)
  - RESPIRATORY FAILURE [None]
